FAERS Safety Report 15133945 (Version 1)
Quarter: 2018Q3

REPORT INFORMATION
  Report Type: Spontaneous
  Country: IT (occurrence: IT)
  Receive Date: 20180712
  Receipt Date: 20180712
  Transmission Date: 20181010
  Serious: Yes (Hospitalization)
  Sender: FDA-Public Use
  Company Number: IT-ANIPHARMA-2018-IT-000070

PATIENT
  Age: 29 Year
  Sex: Male

DRUGS (1)
  1. FLECAINIDE ACETATE (NON?SPECIFIC) [Suspect]
     Active Substance: FLECAINIDE ACETATE
     Dosage: 100 MG TWICE DAILY

REACTIONS (1)
  - Brugada syndrome [Recovered/Resolved]
